FAERS Safety Report 6862798-2 (Version None)
Quarter: 2010Q2

REPORT INFORMATION
  Report Type: 
  Country: None (occurrence: None)
  Receive Date: 20100528
  Receipt Date: 20100405
  Transmission Date: 20101027
  Serious: No
  Sender: FDA-Public Use
  Company Number: 009787

PATIENT
  Sex: Female
  Weight: 122.2 kg

DRUGS (5)
  1. LACOSAMIDE [Suspect]
     Indication: CONVULSION
     Dosage: 50 MG BID ORAL, 150 MG BID ORAL
     Route: 048
     Dates: start: 20100401
  2. FOLIC ACID [Concomitant]
  3. TOPAMAX [Concomitant]
  4. PRENATAL VITAMINS /01549301/ [Concomitant]
  5. ATIVAN [Concomitant]

REACTIONS (10)
  - ABDOMINAL PAIN [None]
  - DIARRHOEA [None]
  - DIZZINESS [None]
  - FATIGUE [None]
  - HEADACHE [None]
  - MALAISE [None]
  - NIGHTMARE [None]
  - PRURITUS [None]
  - SINUS DISORDER [None]
  - TINNITUS [None]
